FAERS Safety Report 24890623 (Version 1)
Quarter: 2025Q1

REPORT INFORMATION
  Report Type: Report from Study
  Country: US (occurrence: US)
  Receive Date: 20250127
  Receipt Date: 20250127
  Transmission Date: 20250409
  Serious: Yes (Hospitalization, Other)
  Sender: TAKEDA
  Company Number: US-BAXTER-2014BAX055528

PATIENT
  Age: 28 Year
  Sex: Female

DRUGS (4)
  1. HUMAN IMMUNOGLOBULIN G [Suspect]
     Active Substance: HUMAN IMMUNOGLOBULIN G
     Indication: Product used for unknown indication
     Dosage: UNK UNK, Q2WEEKS
  2. GAMMAGARD S/D [Suspect]
     Active Substance: HUMAN IMMUNOGLOBULIN G
     Indication: Product used for unknown indication
  3. OCTAGAM IMMUNE GLOBULIN (HUMAN) [Suspect]
     Active Substance: HUMAN IMMUNOGLOBULIN G
     Indication: Product used for unknown indication
  4. OCTAGAM IMMUNE GLOBULIN (HUMAN) [Suspect]
     Active Substance: HUMAN IMMUNOGLOBULIN G
     Dosage: UNK UNK, 2/MONTH

REACTIONS (13)
  - Addison^s disease [Unknown]
  - Antiphospholipid syndrome [Unknown]
  - Device related infection [Unknown]
  - Shunt infection [Unknown]
  - Cerebrospinal fluid leakage [Unknown]
  - Head injury [Not Recovered/Not Resolved]
  - Feeling abnormal [Unknown]
  - Road traffic accident [Recovered/Resolved]
  - Sepsis [Not Recovered/Not Resolved]
  - Vascular device infection [Not Recovered/Not Resolved]
  - Meningitis bacterial [Not Recovered/Not Resolved]
  - Meningitis viral [Not Recovered/Not Resolved]
  - Off label use [Unknown]

NARRATIVE: CASE EVENT DATE: 20140901
